FAERS Safety Report 10528252 (Version 1)
Quarter: 2014Q4

REPORT INFORMATION
  Report Type: Spontaneous
  Country: GB (occurrence: GB)
  Receive Date: 20141020
  Receipt Date: 20141020
  Transmission Date: 20150528
  Serious: Yes (Hospitalization)
  Sender: FDA-Public Use
  Company Number: GB-PFIZER INC-2014281298

PATIENT
  Age: 69 Year
  Sex: Male
  Weight: 60 kg

DRUGS (12)
  1. EPIRUBICIN HCL [Suspect]
     Active Substance: EPIRUBICIN HYDROCHLORIDE
     Dosage: 66 MG, CYCLIC
     Route: 042
     Dates: start: 20121009
  2. AVASTIN [Concomitant]
     Active Substance: BEVACIZUMAB
     Dosage: 495 MG, CYCLIC
     Route: 042
     Dates: start: 20121009
  3. AVASTIN [Concomitant]
     Active Substance: BEVACIZUMAB
     Indication: GASTRIC CANCER
     Dosage: CYCLE NUMBER C6
     Route: 042
     Dates: start: 20120823
  4. LANSOPRAZOLE. [Concomitant]
     Active Substance: LANSOPRAZOLE
     Dosage: 30 MG, UNK
     Route: 048
  5. DOXYCYCLINE. [Concomitant]
     Active Substance: DOXYCYCLINE
     Dosage: 200 MG, UNK
     Route: 048
  6. CISPLATIN. [Suspect]
     Active Substance: CISPLATIN
     Indication: OESOPHAGEAL ADENOCARCINOMA
     Dosage: CYCLE NUMBER C6
     Route: 042
     Dates: start: 20120823
  7. EPIRUBICIN HCL [Suspect]
     Active Substance: EPIRUBICIN HYDROCHLORIDE
     Indication: OESOPHAGEAL ADENOCARCINOMA
     Dosage: CYCLE NUMBER C6
     Route: 042
     Dates: start: 20120823
  8. EPIRUBICIN HCL [Suspect]
     Active Substance: EPIRUBICIN HYDROCHLORIDE
     Dosage: 66 MG, CYCLIC
     Route: 042
     Dates: start: 20120910
  9. XELODA [Suspect]
     Active Substance: CAPECITABINE
     Dosage: 31500 MG, CYCLIC
     Route: 048
     Dates: start: 20121009
  10. XELODA [Suspect]
     Active Substance: CAPECITABINE
     Indication: OESOPHAGEAL ADENOCARCINOMA
     Dosage: CYCLE NUMBER C6
     Route: 048
     Dates: start: 20120823
  11. CISPLATIN. [Suspect]
     Active Substance: CISPLATIN
     Dosage: 106 MG, CYCLIC
     Route: 042
     Dates: start: 20120910
  12. CISPLATIN. [Suspect]
     Active Substance: CISPLATIN
     Dosage: 106 MG, CYCLIC
     Route: 042
     Dates: start: 20121009

REACTIONS (3)
  - Nausea [Recovered/Resolved]
  - Lower respiratory tract infection [Recovered/Resolved]
  - Haematemesis [Recovered/Resolved]

NARRATIVE: CASE EVENT DATE: 20121018
